FAERS Safety Report 20407748 (Version 1)
Quarter: 2022Q1

REPORT INFORMATION
  Report Type: Spontaneous
  Country: US (occurrence: None)
  Receive Date: 20220131
  Receipt Date: 20220131
  Transmission Date: 20220424
  Serious: No
  Sender: FDA-Public Use
  Company Number: 2022A023588

PATIENT
  Sex: Female

DRUGS (2)
  1. SYMBICORT [Suspect]
     Active Substance: BUDESONIDE\FORMOTEROL FUMARATE DIHYDRATE
     Indication: Nasal congestion
     Dosage: 80-4.5 MCG 2 PUFFS TWICE A DAY
     Route: 055
  2. SYMBICORT [Suspect]
     Active Substance: BUDESONIDE\FORMOTEROL FUMARATE DIHYDRATE
     Indication: Nasal congestion
     Dosage: 80-4.5 MCG 2 PUFFS TWICE A DAY
     Route: 055

REACTIONS (4)
  - Pulmonary congestion [Not Recovered/Not Resolved]
  - Device delivery system issue [Unknown]
  - Product dose omission issue [Unknown]
  - Device malfunction [Unknown]
